FAERS Safety Report 9193942 (Version 1)
Quarter: 2013Q1

REPORT INFORMATION
  Report Type: Spontaneous
  Country: CA (occurrence: CA)
  Receive Date: 20130327
  Receipt Date: 20130327
  Transmission Date: 20140127
  Serious: Yes (Other)
  Sender: FDA-Public Use
  Company Number: CHPA2013CA005248

PATIENT
  Sex: Male

DRUGS (3)
  1. OTRIVIN [Suspect]
     Indication: SINUS HEADACHE
     Dosage: UNK DF, 10 TIMES A DAY
     Route: 045
     Dates: start: 1966
  2. OTRIVIN [Suspect]
     Indication: SINUS CONGESTION
  3. OTRIVIN SALINE [Concomitant]

REACTIONS (4)
  - Drug dependence [Unknown]
  - Off label use [Unknown]
  - Overdose [Unknown]
  - Incorrect drug administration duration [Unknown]
